FAERS Safety Report 6480897-4 (Version None)
Quarter: 2009Q4

REPORT INFORMATION
  Report Type: 
  Country: None (occurrence: None)
  Receive Date: 20091208
  Receipt Date: 20091127
  Transmission Date: 20100525
  Serious: Yes (Other)
  Sender: FDA-Public Use
  Company Number: PHHY2009JP50915

PATIENT
  Age: 36 Year
  Sex: Male

DRUGS (1)
  1. GLEEVEC [Suspect]
     Indication: GASTROINTESTINAL STROMAL TUMOUR
     Dosage: UNK
     Route: 048
     Dates: start: 20081101

REACTIONS (6)
  - LEIOMYOMA [None]
  - NEUTROPHIL COUNT DECREASED [None]
  - OESOPHAGEAL OPERATION [None]
  - OESOPHAGEAL STENOSIS [None]
  - OESOPHAGECTOMY [None]
  - OESOPHAGOENTEROSTOMY [None]
